FAERS Safety Report 9469905 (Version 1)
Quarter: 2013Q3

REPORT INFORMATION
  Report Type: Spontaneous
  Country: US (occurrence: US)
  Receive Date: 20130822
  Receipt Date: 20130822
  Transmission Date: 20140515
  Serious: No
  Sender: FDA-Public Use
  Company Number: US-TEVA-423740USA

PATIENT
  Sex: 0

DRUGS (1)
  1. PROGLYCEM SUSPENSION [Suspect]
     Route: 048

REACTIONS (1)
  - Vomiting [Unknown]
